FAERS Safety Report 20816637 (Version 1)
Quarter: 2022Q2

REPORT INFORMATION
  Report Type: Spontaneous
  Country: ES (occurrence: ES)
  Receive Date: 20220512
  Receipt Date: 20220512
  Transmission Date: 20220720
  Serious: Yes (Other)
  Sender: FDA-Public Use
  Company Number: ES-AEMPS-1160933

PATIENT
  Age: 44 Year
  Sex: Female

DRUGS (2)
  1. OMEPRAZOLE [Suspect]
     Active Substance: OMEPRAZOLE
     Indication: Product used for unknown indication
     Dosage: OMEPRAZOL 20 MG 28 CAPSULE, UNK
     Route: 065
     Dates: start: 20210124
  2. DEXKETOPROFEN TROMETAMOL [Suspect]
     Active Substance: DEXKETOPROFEN TROMETAMOL
     Indication: Product used for unknown indication
     Dosage: UNK
     Route: 065
     Dates: start: 20210124

REACTIONS (3)
  - Eye pruritus [Unknown]
  - Dyspnoea [Unknown]
  - Face oedema [Unknown]

NARRATIVE: CASE EVENT DATE: 20210125
